FAERS Safety Report 7475805-3 (Version None)
Quarter: 2011Q2

REPORT INFORMATION
  Report Type: 
  Country: None (occurrence: None)
  Receive Date: 20110504
  Receipt Date: 20110418
  Transmission Date: 20111010
  Serious: Yes (Hospitalization, Disabling)
  Sender: FDA-Public Use
  Company Number: 026785

PATIENT
  Sex: Male
  Weight: 84 kg

DRUGS (11)
  1. MOLSIDOMIN [Concomitant]
  2. AGIOLAX /00029101/ [Concomitant]
  3. ROPINIROLE [Suspect]
     Indication: RESTLESS LEGS SYNDROME
     Dosage: 2 MG QOD, 0.5 MG 1X/24 HOURS, 3MG, 0.5 MG IN THE MORNING, 0.5 MG ON MIDDAY AND 2 MG IN THE EVENING
  4. PALLADON /00080902/ [Concomitant]
  5. MARCUMAR [Concomitant]
  6. MAGNESIUM (MAGNESIUM) [Concomitant]
  7. LAXATIVES [Concomitant]
  8. SPECIFIC ANTIRHEUMATIC AGENTS [Concomitant]
  9. PANTOZOL /01263202/ [Concomitant]
  10. MOVICOL /01749801/ [Concomitant]
  11. NEUPRO [Suspect]
     Indication: RESTLESS LEGS SYNDROME
     Dosage: 1 MG 1X/24 HOURS TRANSDERMAL, 2 MG 1X24 HOURS TRANSDERMAL, 4 MG 1X/24 HOURS, IN THE EVENNG TRANSDERM
     Route: 062

REACTIONS (7)
  - RESTLESS LEGS SYNDROME [None]
  - CONDITION AGGRAVATED [None]
  - DIZZINESS [None]
  - HEADACHE [None]
  - FATIGUE [None]
  - INSOMNIA [None]
  - DYSKINESIA [None]
